FAERS Safety Report 17297392 (Version 1)
Quarter: 2020Q1

REPORT INFORMATION
  Report Type: Spontaneous
  Country: NL (occurrence: NL)
  Receive Date: 20200122
  Receipt Date: 20200122
  Transmission Date: 20200409
  Serious: Yes (Other)
  Sender: FDA-Public Use
  Company Number: NL-AUROBINDO-AUR-APL-2020-003240

PATIENT
  Sex: Male

DRUGS (3)
  1. AVAMYS [Concomitant]
     Active Substance: FLUTICASONE FUROATE
     Indication: PRODUCT USED FOR UNKNOWN INDICATION
     Dosage: UNK
     Route: 065
  2. OMEPRAZOLE 20 MG GASTRO-RESISTANT CAPSULES,HARD [Suspect]
     Active Substance: OMEPRAZOLE
     Indication: ABDOMINAL PAIN
     Dosage: 20 MILLIGRAM, ONCE A DAY (MAAGSAPRESISTENTE CAPSULE, 20 MG (MILLIGRAM), 1 KEER PER DAG, 1)
     Route: 065
     Dates: start: 201911
  3. PANTOPTRAZOL 20MG GASTRO-RESISTANT TABLETS [Suspect]
     Active Substance: PANTOPRAZOLE
     Indication: ABDOMINAL PAIN
     Dosage: 20 MILLIGRAM, ONCE A DAY (MAAGSAPRESISTENTE TABLET, 20 MG (MILLIGRAM), 1 KEER PER DAG, 1)
     Route: 065
     Dates: start: 201911

REACTIONS (4)
  - Hyperventilation [Recovered/Resolved]
  - Syncope [Recovered/Resolved]
  - Heart rate increased [Recovered/Resolved]
  - Pallor [Recovered/Resolved]
